FAERS Safety Report 16694787 (Version 2)
Quarter: 2020Q1

REPORT INFORMATION
  Report Type: Other
  Country: FR (occurrence: FR)
  Receive Date: 20190812
  Receipt Date: 20200129
  Transmission Date: 20200409
  Serious: Yes (Death, Life-Threatening, Other)
  Sender: FDA-Public Use
  Company Number: FR-GE HEALTHCARE LIFE SCIENCES-2019CSU004068

PATIENT

DRUGS (14)
  1. DOTAREM [Suspect]
     Active Substance: GADOTERATE MEGLUMINE
     Dosage: UNK
     Route: 065
     Dates: start: 20031023, end: 20031023
  2. DOTAREM [Suspect]
     Active Substance: GADOTERATE MEGLUMINE
     Dosage: UNK
     Route: 065
     Dates: start: 20031030, end: 20031030
  3. MAGNEVIST [Suspect]
     Active Substance: GADOPENTETATE DIMEGLUMINE
     Indication: MAGNETIC RESONANCE IMAGING
     Dates: start: 20050212, end: 20050212
  4. CELECTOL [Concomitant]
     Active Substance: CELIPROLOL HYDROCHLORIDE
     Indication: HYPERTENSION
     Route: 065
  5. OMNISCAN [Suspect]
     Active Substance: GADODIAMIDE
     Indication: PRODUCT USED FOR UNKNOWN INDICATION
     Dosage: UNK UNK, SINGLE
     Route: 065
  6. OMNISCAN [Suspect]
     Active Substance: GADODIAMIDE
     Dosage: UNK UNK, SINGLE
     Route: 065
  7. OMNISCAN [Suspect]
     Active Substance: GADODIAMIDE
     Dosage: UNK UNK, SINGLE
     Route: 065
  8. DOTAREM [Suspect]
     Active Substance: GADOTERATE MEGLUMINE
     Dosage: UNK
     Route: 065
     Dates: start: 20040318, end: 20040318
  9. MAGNEVIST [Suspect]
     Active Substance: GADOPENTETATE DIMEGLUMINE
     Dosage: UNK
     Route: 065
     Dates: start: 20050530, end: 20050530
  10. MAGNEVIST [Suspect]
     Active Substance: GADOPENTETATE DIMEGLUMINE
     Dosage: UNK
     Dates: start: 20041110, end: 20041110
  11. OMNISCAN [Suspect]
     Active Substance: GADODIAMIDE
     Indication: MAGNETIC RESONANCE IMAGING
     Dosage: UNK UNK, SINGLE
     Route: 065
  12. DOTAREM [Suspect]
     Active Substance: GADOTERATE MEGLUMINE
     Indication: MAGNETIC RESONANCE IMAGING
     Dosage: UNK
     Route: 065
     Dates: start: 20030605, end: 20030605
  13. MAGNEVIST [Suspect]
     Active Substance: GADOPENTETATE DIMEGLUMINE
     Dosage: UNK
     Dates: start: 20041217, end: 20041217
  14. LIPANOR [Concomitant]
     Active Substance: CIPROFIBRATE
     Indication: HYPERCHOLESTEROLAEMIA
     Route: 065

REACTIONS (3)
  - Cardiac disorder [Fatal]
  - Product residue present [Fatal]
  - Nephrogenic systemic fibrosis [Fatal]

NARRATIVE: CASE EVENT DATE: 20041130
